FAERS Safety Report 14524437 (Version 1)
Quarter: 2018Q1

REPORT INFORMATION
  Report Type: Spontaneous
  Country: US (occurrence: US)
  Receive Date: 20180213
  Receipt Date: 20180213
  Transmission Date: 20180509
  Serious: No
  Sender: FDA-Public Use
  Company Number: US-PFIZER INC-2017176565

PATIENT
  Age: 14 Year
  Sex: Female
  Weight: 43 kg

DRUGS (1)
  1. GENOTROPIN [Suspect]
     Active Substance: SOMATROPIN
     Dosage: 2.4 MG DAILY (0.37 MG/KG/WK)
     Dates: start: 20120323

REACTIONS (3)
  - Drug dose omission [Unknown]
  - Headache [Unknown]
  - Device issue [Unknown]
